FAERS Safety Report 8973408 (Version 2)
Quarter: 2013Q1

REPORT INFORMATION
  Report Type: Spontaneous
  Country: US (occurrence: US)
  Receive Date: 20121218
  Receipt Date: 20130103
  Transmission Date: 20140127
  Serious: Yes (Hospitalization, Other)
  Sender: FDA-Public Use
  Company Number: US-VERTEX PHARMACEUTICALS INC.-2012-026195

PATIENT
  Age: 40 None
  Sex: Female
  Weight: 62 kg

DRUGS (12)
  1. INCIVEK [Suspect]
     Indication: HEPATITIS C
     Dosage: 750 MG, TID
     Route: 048
     Dates: start: 20121109
  2. RIBAVIRIN [Suspect]
     Indication: HEPATITIS C
     Dosage: 600 MG AM, 400 MG PM, QD
     Route: 048
     Dates: start: 20121109
  3. PEGASYS [Suspect]
     Indication: HEPATITIS C
     Dosage: 180 ?G, QW
     Route: 058
     Dates: start: 20121109, end: 20121206
  4. PEGASYS [Suspect]
     Dosage: 90 ?G, QW
     Route: 058
     Dates: start: 20121221
  5. KLONOPIN [Concomitant]
     Indication: ANXIETY
     Route: 048
  6. KLONOPIN [Concomitant]
     Indication: POST-TRAUMATIC STRESS DISORDER
  7. ZOLOFT [Concomitant]
     Indication: DEPRESSION
     Route: 048
  8. ZOLOFT [Concomitant]
     Indication: POST-TRAUMATIC STRESS DISORDER
  9. REMERON [Concomitant]
     Indication: DEPRESSION
  10. REMERON [Concomitant]
     Indication: POST-TRAUMATIC STRESS DISORDER
  11. DOXEPIN [Concomitant]
     Indication: ANXIETY
     Route: 048
  12. DOXEPIN [Concomitant]
     Indication: POST-TRAUMATIC STRESS DISORDER

REACTIONS (11)
  - Haemorrhage [Recovered/Resolved]
  - Platelet count decreased [Not Recovered/Not Resolved]
  - Menorrhagia [Recovered/Resolved]
  - Drug dose omission [Recovered/Resolved]
  - Headache [Recovered/Resolved]
  - Dehydration [Not Recovered/Not Resolved]
  - White blood cell count decreased [Not Recovered/Not Resolved]
  - Nausea [Not Recovered/Not Resolved]
  - Vomiting [Recovered/Resolved]
  - Pruritus [Not Recovered/Not Resolved]
  - Haemoglobin decreased [Not Recovered/Not Resolved]
